FAERS Safety Report 5337088-X (Version None)
Quarter: 2007Q2

REPORT INFORMATION
  Report Type: 
  Country: None (occurrence: None)
  Receive Date: 20070529
  Receipt Date: 20070524
  Transmission Date: 20071010
  Serious: Yes (Other)
  Sender: FDA-Public Use
  Company Number: JP-BRISTOL-MYERS SQUIBB COMPANY-13392873

PATIENT
  Age: 33 Year
  Sex: Female

DRUGS (4)
  1. ZERIT [Suspect]
     Indication: HIV INFECTION
     Route: 048
     Dates: start: 19990203
  2. EPIVIR [Suspect]
     Indication: HIV INFECTION
     Route: 048
     Dates: start: 19990203
  3. VIRACEPT [Suspect]
     Indication: HIV INFECTION
     Dosage: VIRACEPT (NFV) 2200-2500 MG/DAY DOSED
     Route: 048
     Dates: start: 19990210
  4. RETROVIR [Concomitant]
     Route: 042
     Dates: start: 20050728, end: 20050728

REACTIONS (6)
  - ANAEMIA [None]
  - BLOOD TRIGLYCERIDES INCREASED [None]
  - DEEP VEIN THROMBOSIS [None]
  - MUSCULOSKELETAL PAIN [None]
  - NORMAL NEWBORN [None]
  - PREGNANCY [None]
